FAERS Safety Report 14847958 (Version 1)
Quarter: 2018Q2

REPORT INFORMATION
  Report Type: Spontaneous
  Country: US (occurrence: US)
  Receive Date: 20180419
  Receipt Date: 20180419
  Transmission Date: 20180711
  Serious: Yes (Death, Hospitalization)
  Sender: FDA-Public Use
  Company Number: None

PATIENT
  Age: 5 Year
  Sex: Male
  Weight: 15.6 kg

DRUGS (4)
  1. VINCRISTINE SULFATE. [Suspect]
     Active Substance: VINCRISTINE SULFATE
     Dates: end: 20180105
  2. MERCAPTOPURINE. [Suspect]
     Active Substance: MERCAPTOPURINE
     Dates: end: 20180328
  3. PREDNISONE. [Suspect]
     Active Substance: PREDNISONE
     Dates: end: 20180109
  4. METHOTREXATE. [Suspect]
     Active Substance: METHOTREXATE
     Dates: end: 20180105

REACTIONS (11)
  - Coronavirus test positive [None]
  - Gastrointestinal wall thickening [None]
  - Neutropenia [None]
  - Diarrhoea [None]
  - Vomiting [None]
  - Weight decreased [None]
  - Clostridium test positive [None]
  - Clostridium difficile colitis [None]
  - Septic shock [None]
  - Hypotension [None]
  - Multiple organ dysfunction syndrome [None]

NARRATIVE: CASE EVENT DATE: 20180328
